FAERS Safety Report 8122114-5 (Version None)
Quarter: 2012Q1

REPORT INFORMATION
  Report Type: 
  Country: None (occurrence: None)
  Receive Date: 20120207
  Receipt Date: 20120207
  Transmission Date: 20120608
  Serious: Yes (Other)
  Sender: FDA-Public Use
  Company Number: None

PATIENT
  Sex: Female
  Weight: 77.1115 kg

DRUGS (1)
  1. GILENYA [Suspect]
     Indication: MULTIPLE SCLEROSIS
     Dosage: GILENYA 0.5 MG DAILY P.O.
     Route: 048
     Dates: start: 20110401, end: 20120104

REACTIONS (3)
  - AMNESIA [None]
  - ATAXIA [None]
  - PERSONALITY CHANGE [None]
